FAERS Safety Report 15419919 (Version 1)
Quarter: 2018Q3

REPORT INFORMATION
  Report Type: Spontaneous
  Country: US (occurrence: US)
  Receive Date: 20180924
  Receipt Date: 20180924
  Transmission Date: 20181010
  Serious: No
  Sender: FDA-Public Use
  Company Number: US-ADAMAS PHARMA, LLC-2018ADA01205

PATIENT
  Sex: Female

DRUGS (9)
  1. TYLENOL [Concomitant]
     Active Substance: ACETAMINOPHEN
  2. UNSPECIFIED LEVODOPA?BASED THERAPY [Concomitant]
  3. CARBIDOPA. [Concomitant]
     Active Substance: CARBIDOPA
  4. ALEVE [Concomitant]
     Active Substance: NAPROXEN SODIUM
  5. PRISTIQ EXTENDED?RELEASE [Concomitant]
     Active Substance: DESVENLAFAXINE SUCCINATE
  6. CALCIUM D [Concomitant]
     Active Substance: CALCIUM\VITAMIN D
  7. RIVASTIGMINE. [Concomitant]
     Active Substance: RIVASTIGMINE
  8. GOCOVRI [Suspect]
     Active Substance: AMANTADINE
     Indication: DYSKINESIA
     Dosage: 274 MG, 1X/DAY AT BEDTIME
     Dates: start: 20180227, end: 2018
  9. GOCOVRI [Suspect]
     Active Substance: AMANTADINE
     Dosage: 137 MG, 1X/DAY AT BEDTIME
     Route: 048
     Dates: start: 2018

REACTIONS (2)
  - Skin discolouration [Not Recovered/Not Resolved]
  - Intentional underdose [Not Recovered/Not Resolved]

NARRATIVE: CASE EVENT DATE: 2018
